FAERS Safety Report 6640902-9 (Version None)
Quarter: 2010Q1

REPORT INFORMATION
  Report Type: 
  Country: None (occurrence: None)
  Receive Date: 20100318
  Receipt Date: 20100311
  Transmission Date: 20100710
  Serious: Yes (Death, Hospitalization)
  Sender: FDA-Public Use
  Company Number: JP-ABBOTT-10P-087-0630079-00

PATIENT
  Age: 5 Year
  Sex: Male

DRUGS (3)
  1. CLARITH [Suspect]
     Indication: MYCOPLASMA INFECTION
  2. LOXOPROFEN SODIUM [Suspect]
     Indication: MYCOPLASMA INFECTION
  3. LOXOPROFEN SODIUM [Concomitant]
     Indication: DRUG USE FOR UNKNOWN INDICATION

REACTIONS (2)
  - BRONCHIOLITIS [None]
  - STEVENS-JOHNSON SYNDROME [None]
